FAERS Safety Report 7122139-2 (Version None)
Quarter: 2010Q4

REPORT INFORMATION
  Report Type: 
  Country: None (occurrence: None)
  Receive Date: 20101124
  Receipt Date: 20101119
  Transmission Date: 20110411
  Serious: Yes (Hospitalization, Other)
  Sender: FDA-Public Use
  Company Number: ES-BRISTOL-MYERS SQUIBB COMPANY-15309230

PATIENT
  Age: 56 Year
  Sex: Male

DRUGS (1)
  1. ENTECAVIR [Suspect]
     Dates: start: 20100101

REACTIONS (8)
  - ALANINE AMINOTRANSFERASE INCREASED [None]
  - ASPARTATE AMINOTRANSFERASE INCREASED [None]
  - BLOOD CREATININE INCREASED [None]
  - GENERAL PHYSICAL HEALTH DETERIORATION [None]
  - HEPATITIS VIRAL [None]
  - HEPATOTOXICITY [None]
  - JAUNDICE [None]
  - TRANSAMINASES INCREASED [None]
